FAERS Safety Report 22534368 (Version 1)
Quarter: 2023Q2

REPORT INFORMATION
  Report Type: Report from Study
  Country: US (occurrence: US)
  Receive Date: 20230608
  Receipt Date: 20230608
  Transmission Date: 20230722
  Serious: Yes (Hospitalization)
  Sender: FDA-Public Use
  Company Number: US-ABBVIE-5279369

PATIENT
  Sex: Female

DRUGS (2)
  1. IMBRUVICA [Suspect]
     Active Substance: IBRUTINIB
     Indication: Mantle cell lymphoma
     Dosage: END DATE -2023
     Route: 048
     Dates: start: 202301
  2. IMBRUVICA [Suspect]
     Active Substance: IBRUTINIB
     Indication: Mantle cell lymphoma
     Dosage: START DATE -2023.
     Route: 048

REACTIONS (7)
  - Pyoderma [Unknown]
  - Nausea [Unknown]
  - Abdominal distension [Recovered/Resolved]
  - Adverse drug reaction [Unknown]
  - Emotional disorder [Unknown]
  - Lymph node haemorrhage [Unknown]
  - Gastric disorder [Unknown]

NARRATIVE: CASE EVENT DATE: 20230101
